FAERS Safety Report 13619427 (Version 1)
Quarter: 2017Q2

REPORT INFORMATION
  Report Type: Report from Study
  Country: US (occurrence: US)
  Receive Date: 20170606
  Receipt Date: 20170606
  Transmission Date: 20170830
  Serious: No
  Sender: FDA-Public Use
  Company Number: US-AMGEN-USASP2017015333

PATIENT
  Age: 87 Year
  Sex: Female
  Weight: 75.75 kg

DRUGS (17)
  1. PROCRIT [Suspect]
     Active Substance: ERYTHROPOIETIN
     Indication: NEPHROGENIC ANAEMIA
     Dosage: 60000 UNIT (3 ML), Q4WK (PERIODICALLY TO KEEP HEMOGLOBIN ABOVE 10 G)
     Route: 065
  2. JANUVIA [Concomitant]
     Active Substance: SITAGLIPTIN PHOSPHATE
     Dosage: 50 MG, UNK
     Dates: start: 20160510
  3. BENICAR [Concomitant]
     Active Substance: OLMESARTAN MEDOXOMIL
     Dosage: 40 MG, UNK
     Dates: start: 20160704
  4. PANTOPRAZOLE [Concomitant]
     Active Substance: PANTOPRAZOLE
     Dosage: 40 MG, UNK
     Dates: start: 20160126
  5. FLUZONE NO PRESERVATIVE [Concomitant]
     Dosage: 180 MCG/ 0.5 ML
     Route: 030
     Dates: start: 20131028
  6. VITAMIN D3 [Concomitant]
     Active Substance: CHOLECALCIFEROL
     Dosage: 5000 UNIT, UNK
     Route: 048
     Dates: start: 20150217
  7. FLUZONE NO PRESERVATIVE [Concomitant]
     Dosage: UNK
  8. NITROSTAT [Concomitant]
     Active Substance: NITROGLYCERIN
     Dosage: 0.4 MG, UNK
     Dates: start: 20151119
  9. CARVEDILOL. [Concomitant]
     Active Substance: CARVEDILOL
     Dosage: 25 MG, UNK
     Dates: start: 20160704
  10. AMLODIPINE [Concomitant]
     Active Substance: AMLODIPINE BESYLATE
     Dosage: 10 MG, UNK
     Dates: start: 20160704
  11. LEVOTHYROXINE. [Concomitant]
     Active Substance: LEVOTHYROXINE
     Dosage: 112 MUG, UNK
     Dates: start: 20160704
  12. CRESTOR [Concomitant]
     Active Substance: ROSUVASTATIN CALCIUM
     Dosage: 20 MG, UNK
     Dates: start: 20140606
  13. PROCRIT [Suspect]
     Active Substance: ERYTHROPOIETIN
     Indication: CHRONIC KIDNEY DISEASE
  14. ASPRIN [Concomitant]
     Active Substance: ASPIRIN
     Dosage: 81 MG, QD
     Route: 048
     Dates: start: 20130212
  15. FLUZONE NO PRESERVATIVE [Concomitant]
     Dosage: UNK
     Dates: start: 2012
  16. FLUZONE NO PRESERVATIVE [Concomitant]
     Dosage: 180 MCG/ 0.5 ML
     Route: 030
     Dates: start: 20140925
  17. WELCHOL [Concomitant]
     Active Substance: COLESEVELAM HYDROCHLORIDE
     Dosage: 3.75 G, UNK
     Dates: start: 20160321

REACTIONS (2)
  - Iron deficiency anaemia [Unknown]
  - Arthralgia [Not Recovered/Not Resolved]
